FAERS Safety Report 5734528-9 (Version None)
Quarter: 2008Q2

REPORT INFORMATION
  Report Type: 
  Country: None (occurrence: None)
  Receive Date: 20080512
  Receipt Date: 20080508
  Transmission Date: 20081010
  Serious: Yes (Life-Threatening, Other)
  Sender: FDA-Public Use
  Company Number: PHEH2008US03916

PATIENT
  Age: 52 Year
  Sex: Male
  Weight: 58.049 kg

DRUGS (11)
  1. ZOMETA [Suspect]
     Indication: MULTIPLE MYELOMA
     Dosage: 4 MG, MONTHLY
     Route: 042
     Dates: start: 20051006, end: 20071112
  2. THALIDOMIDE [Concomitant]
     Indication: MULTIPLE MYELOMA
     Dosage: 100 MG, UNK
     Dates: start: 20051001
  3. THALIDOMIDE [Concomitant]
     Dosage: 200 MG, UNK
     Dates: end: 20060501
  4. THALIDOMIDE [Concomitant]
     Dosage: 100 MG, Q28DAYS
     Dates: start: 20061101, end: 20070101
  5. DEXAMETHASONE [Concomitant]
     Indication: MULTIPLE MYELOMA
     Dosage: 40 MG, QID,4DAYS ON, 4DAYS OFF, Q28DAYS
     Dates: start: 20050901, end: 20051001
  6. DEXAMETHASONE [Concomitant]
     Dates: start: 20051001, end: 20060501
  7. DEXAMETHASONE [Concomitant]
     Dates: start: 20061101, end: 20070101
  8. DEXAMETHASONE [Concomitant]
     Dates: start: 20070501, end: 20071001
  9. REVLIMID [Concomitant]
     Indication: MULTIPLE MYELOMA
     Dosage: 25 MG, 21DAYS ON/7DAYS OFF
     Dates: start: 20070501, end: 20071101
  10. VELCADE [Concomitant]
     Indication: MULTIPLE MYELOMA
     Dosage: 2.2 MG, DAY1,4,8,11
     Dates: start: 20071101, end: 20080201
  11. DOXIL [Concomitant]
     Indication: MULTIPLE MYELOMA
     Dosage: 52 MG, QMONTH
     Dates: start: 20071101, end: 20080201

REACTIONS (4)
  - BONE SWELLING [None]
  - MULTIPLE MYELOMA [None]
  - OSTEONECROSIS [None]
  - TOOTH ABSCESS [None]
